FAERS Safety Report 9475124 (Version 1)
Quarter: 2013Q3

REPORT INFORMATION
  Report Type: Spontaneous
  Country: DE (occurrence: None)
  Receive Date: 20130820
  Receipt Date: 20130820
  Transmission Date: 20140515
  Serious: Yes (Other)
  Sender: FDA-Public Use
  Company Number: GER/GER/13/0034029

PATIENT
  Age: 88 Year
  Sex: Male
  Weight: 75 kg

DRUGS (4)
  1. SIMVASTATIN [Suspect]
     Indication: HYPERCHOLESTEROLAEMIA
     Route: 048
     Dates: end: 201304
  2. LISINOPRIL (LISINOPRIL) [Concomitant]
  3. ASS (ACETYLSALICYLIC ACID) [Concomitant]
  4. VESICUR (SOLIFENACIN SUCCINATE) [Concomitant]

REACTIONS (5)
  - Asthenia [None]
  - Fatigue [None]
  - Myopathy [None]
  - Somnolence [None]
  - General physical health deterioration [None]
